FAERS Safety Report 22018911 (Version 1)
Quarter: 2023Q1

REPORT INFORMATION
  Report Type: Spontaneous
  Country: US (occurrence: US)
  Receive Date: 20230222
  Receipt Date: 20230222
  Transmission Date: 20230418
  Serious: No
  Sender: FDA-Public Use
  Company Number: US-TARO PHARMACEUTICALS USA INC.-2022TAR00955

PATIENT

DRUGS (2)
  1. MINOXIDIL [Suspect]
     Active Substance: MINOXIDIL
     Indication: Alopecia
     Dosage: HALF CAPFUL ONCE DAILY, TOP OF THE SCALP
     Route: 061
     Dates: start: 20220604
  2. CORTISONE\HYDROCORTISONE [Concomitant]
     Active Substance: CORTISONE\HYDROCORTISONE
     Indication: Alopecia
     Dosage: UNK
     Route: 065
     Dates: start: 202203

REACTIONS (2)
  - Condition aggravated [Unknown]
  - Product use issue [Unknown]

NARRATIVE: CASE EVENT DATE: 20220604
